FAERS Safety Report 17495099 (Version 2)
Quarter: 2020Q2

REPORT INFORMATION
  Report Type: Spontaneous
  Country: US (occurrence: US)
  Receive Date: 20200303
  Receipt Date: 20200602
  Transmission Date: 20200713
  Serious: Yes (Other)
  Sender: FDA-Public Use
  Company Number: US-JNJFOC-20200230687

PATIENT
  Age: 21 Year
  Sex: Male
  Weight: 99.88 kg

DRUGS (3)
  1. INVEGA SUSTENNA [Suspect]
     Active Substance: PALIPERIDONE PALMITATE
     Indication: BIPOLAR DISORDER
  2. INVEGA SUSTENNA [Suspect]
     Active Substance: PALIPERIDONE PALMITATE
  3. INVEGA SUSTENNA [Suspect]
     Active Substance: PALIPERIDONE PALMITATE
     Indication: SCHIZOAFFECTIVE DISORDER
     Dosage: PRESCRIPTION NUMBER: 5045856401; ONCE A MONTH
     Route: 030
     Dates: start: 2019

REACTIONS (5)
  - Product dose omission [Unknown]
  - Hallucination [Unknown]
  - Delusion [Unknown]
  - Tremor [Unknown]
  - Weight increased [Unknown]

NARRATIVE: CASE EVENT DATE: 202001
